FAERS Safety Report 16775096 (Version 1)
Quarter: 2019Q3

REPORT INFORMATION
  Report Type: Spontaneous
  Country: GB (occurrence: GB)
  Receive Date: 20190905
  Receipt Date: 20190905
  Transmission Date: 20191005
  Serious: Yes (Disabling)
  Sender: FDA-Public Use
  Company Number: GB-TEVA-2019-GB-1101280

PATIENT
  Age: 22 Year
  Sex: Male
  Weight: 76 kg

DRUGS (4)
  1. CO-AMOXICLAV [Concomitant]
     Active Substance: AMOXICILLIN\CLAVULANATE POTASSIUM
  2. VANCOMYCIN [Suspect]
     Active Substance: VANCOMYCIN
     Dosage: 48 HOUR CONTINUOUS INFUSION ADJUSTED TO RENAL AND LEVELS
     Route: 051
     Dates: start: 20190719, end: 20190721
  3. TESTOSTERONE. [Concomitant]
     Active Substance: TESTOSTERONE
  4. TAZOCIN [Concomitant]
     Active Substance: PIPERACILLIN SODIUM\TAZOBACTAM SODIUM

REACTIONS (2)
  - Deafness neurosensory [Unknown]
  - Ototoxicity [Not Recovered/Not Resolved]

NARRATIVE: CASE EVENT DATE: 20190730
